FAERS Safety Report 24761405 (Version 1)
Quarter: 2024Q4

REPORT INFORMATION
  Report Type: Report from Study
  Country: US (occurrence: US)
  Receive Date: 20241220
  Receipt Date: 20241220
  Transmission Date: 20250114
  Serious: Yes (Hospitalization, Other)
  Sender: ALEXION PHARMACEUTICALS
  Company Number: US-PFIZER INC-202400221690

PATIENT
  Age: 49 Year

DRUGS (4)
  1. LYNPARZA [Suspect]
     Active Substance: OLAPARIB
     Dosage: UNK
     Route: 065
  2. TUCATINIB [Suspect]
     Active Substance: TUCATINIB
     Dosage: 300 MILLIGRAM, BID
  3. TUCATINIB [Suspect]
     Active Substance: TUCATINIB
     Dosage: 300 MILLIGRAMS TWICE DAILY
  4. TUCATINIB [Suspect]
     Active Substance: TUCATINIB
     Dosage: 300 MG TWICE DAILY

REACTIONS (7)
  - Pneumonia [Recovering/Resolving]
  - Nausea [Unknown]
  - Diarrhoea [Unknown]
  - Fluid retention [Not Recovered/Not Resolved]
  - Swelling [Not Recovered/Not Resolved]
  - Dizziness [Not Recovered/Not Resolved]
  - Anaemia [Not Recovered/Not Resolved]
